FAERS Safety Report 7314690-7 (Version None)
Quarter: 2011Q1

REPORT INFORMATION
  Report Type: 
  Country: None (occurrence: None)
  Receive Date: 20110225
  Receipt Date: 20101111
  Transmission Date: 20110831
  Serious: No
  Sender: FDA-Public Use
  Company Number: US-MYLANLABS-2010S1020715

PATIENT
  Age: 24 Year
  Sex: Female

DRUGS (3)
  1. AMNESTEEM [Suspect]
     Indication: ACNE
     Route: 048
     Dates: start: 20100816, end: 20101028
  2. ORTHO TRI-CYCLEN [Concomitant]
     Indication: CONTRACEPTION
  3. ADDERALL 10 [Concomitant]
     Indication: ATTENTION DEFICIT/HYPERACTIVITY DISORDER

REACTIONS (2)
  - MUSCLE FATIGUE [None]
  - FATIGUE [None]
